FAERS Safety Report 6018732-0 (Version None)
Quarter: 2008Q4

REPORT INFORMATION
  Report Type: 
  Country: None (occurrence: None)
  Receive Date: 20081223
  Receipt Date: 20081216
  Transmission Date: 20090506
  Serious: Yes (Other)
  Sender: FDA-Public Use
  Company Number: US-AMGEN-QUU324082

PATIENT
  Sex: Female
  Weight: 10 kg

DRUGS (6)
  1. EPOGEN [Suspect]
     Indication: DIALYSIS
     Dates: start: 20080101
  2. CLONIDINE [Concomitant]
  3. AMLODIPINE [Concomitant]
  4. LOSARTAN [Concomitant]
  5. ENALAPRIL MALEATE [Concomitant]
  6. ZEMPLAR [Concomitant]

REACTIONS (3)
  - HAEMOGLOBIN DECREASED [None]
  - IRON OVERLOAD [None]
  - RENAL OSTEODYSTROPHY [None]
